FAERS Safety Report 23787760 (Version 1)
Quarter: 2024Q2

REPORT INFORMATION
  Report Type: Spontaneous
  Country: PL (occurrence: PL)
  Receive Date: 20240426
  Receipt Date: 20240426
  Transmission Date: 20240716
  Serious: Yes (Hospitalization)
  Sender: FDA-Public Use
  Company Number: PL-ACTAVIS-2014-12137

PATIENT
  Age: 63 Year
  Sex: Female
  Weight: 72 kg

DRUGS (1)
  1. DOCETAXEL [Suspect]
     Active Substance: DOCETAXEL\DOCETAXEL ANHYDROUS
     Indication: Breast cancer
     Dosage: TIME INTERVAL: CYCLICAL: DOSAGE TEXT: 130 MG, CYCLICAL
     Route: 042
     Dates: start: 20140508, end: 20140508

REACTIONS (4)
  - Loss of consciousness [Recovered/Resolved]
  - Loss of consciousness [Recovered/Resolved]
  - Blood pressure decreased [Recovered/Resolved]
  - Blood pressure measurement [Recovered/Resolved]

NARRATIVE: CASE EVENT DATE: 20140508
